FAERS Safety Report 8825316 (Version 4)
Quarter: 2013Q2

REPORT INFORMATION
  Report Type: Report from Study
  Country: US (occurrence: US)
  Receive Date: 20121004
  Receipt Date: 20130515
  Transmission Date: 20140414
  Serious: No
  Sender: FDA-Public Use
  Company Number: US-VERTEX PHARMACEUTICAL INC.-2012-021259

PATIENT
  Age: 62 Year
  Sex: Male

DRUGS (6)
  1. VX-950 (TELAPREVIR) [Suspect]
     Indication: HEPATITIS C
     Dosage: UNK
     Route: 048
     Dates: start: 20120712, end: 20121003
  2. RIBAVIRIN [Suspect]
     Indication: HEPATITIS C
     Dosage: UNK
     Dates: start: 20120712
  3. RIBAVIRIN [Suspect]
     Dosage: 600 MG, QD
     Dates: start: 201208
  4. RIBAVIRIN [Suspect]
     Dosage: 800 MG, QD
     Dates: start: 20120912
  5. RIBAVIRIN [Suspect]
     Dosage: 1000 MG, QD
  6. PEGASYS [Suspect]
     Indication: HEPATITIS C
     Dosage: UNK
     Dates: start: 20120712

REACTIONS (8)
  - Fatigue [Not Recovered/Not Resolved]
  - Asthenia [Unknown]
  - Rash [Not Recovered/Not Resolved]
  - Rectal haemorrhage [Not Recovered/Not Resolved]
  - Haemorrhoids [Unknown]
  - Anaemia [Not Recovered/Not Resolved]
  - Vomiting [Not Recovered/Not Resolved]
  - Nausea [Not Recovered/Not Resolved]
